FAERS Safety Report 13023311 (Version 1)
Quarter: 2016Q4

REPORT INFORMATION
  Report Type: Spontaneous
  Country: US (occurrence: US)
  Receive Date: 20161213
  Receipt Date: 20161213
  Transmission Date: 20170207
  Serious: No
  Sender: FDA-Public Use
  Company Number: US-LPDUSPRD-20160318

PATIENT
  Sex: Female

DRUGS (2)
  1. POTASSIUM [Concomitant]
     Active Substance: POTASSIUM
     Dosage: DOSE UNKNOWN
     Route: 065
  2. VENOFER [Suspect]
     Active Substance: IRON SUCROSE
     Dosage: 100 MG
     Route: 065
     Dates: start: 20160105

REACTIONS (1)
  - Off label use [Unknown]

NARRATIVE: CASE EVENT DATE: 20160105
